FAERS Safety Report 9958943 (Version 1)
Quarter: 2014Q1

REPORT INFORMATION
  Report Type: Report from Study
  Country: US (occurrence: US)
  Receive Date: 20140305
  Receipt Date: 20140305
  Transmission Date: 20141002
  Serious: No
  Sender: FDA-Public Use
  Company Number: US-ABBVIE-13P-163-1102049-00

PATIENT
  Sex: Male

DRUGS (9)
  1. HUMIRA [Suspect]
     Indication: CROHN^S DISEASE
     Dates: start: 20130509, end: 20130509
  2. HUMIRA [Suspect]
     Dates: start: 20130523, end: 20130523
  3. HUMIRA [Suspect]
     Dates: start: 20130606
  4. CRESTOR [Concomitant]
     Indication: BLOOD CHOLESTEROL
  5. PENTASA [Concomitant]
     Indication: CROHN^S DISEASE
  6. FORTESTA [Concomitant]
     Indication: BLOOD TESTOSTERONE DECREASED
  7. ASPIRIN [Concomitant]
     Indication: CARDIOVASCULAR EVENT PROPHYLAXIS
     Dosage: QPM
  8. MULTIVITAMIN [Concomitant]
     Indication: PRODUCT USED FOR UNKNOWN INDICATION
  9. FOLIC ACID [Concomitant]
     Indication: PRODUCT USED FOR UNKNOWN INDICATION

REACTIONS (1)
  - Fatigue [Unknown]
